FAERS Safety Report 11209128 (Version 2)
Quarter: 2015Q3

REPORT INFORMATION
  Report Type: Spontaneous
  Country: IN (occurrence: IN)
  Receive Date: 20150622
  Receipt Date: 20150820
  Transmission Date: 20151125
  Serious: Yes (Death, Other)
  Sender: FDA-Public Use
  Company Number: PHHY2015IN072218

PATIENT
  Age: 14 Year
  Sex: Female
  Weight: 25 kg

DRUGS (4)
  1. THIOPENTONE [Concomitant]
     Active Substance: THIOPENTAL SODIUM
     Indication: ANAESTHESIA
     Dosage: 5 UNK, UNK
     Route: 042
  2. PROPANOLOL [Suspect]
     Active Substance: PROPRANOLOL HYDROCHLORIDE
     Indication: HEPATIC VEIN OCCLUSION
     Dosage: 40 MG, UNK
     Route: 048
  3. SUCCINYLCHOLINE CHLORIDE. [Suspect]
     Active Substance: SUCCINYLCHOLINE CHLORIDE
     Indication: ANAESTHESIA
     Dosage: 1.5 MG/KG, UNK
     Route: 042
  4. FENTANYL. [Concomitant]
     Active Substance: FENTANYL
     Indication: ANAESTHESIA
     Dosage: 1.5 ?G/KG
     Route: 042

REACTIONS (4)
  - Drug interaction [Fatal]
  - Bradycardia [Fatal]
  - Cardiac arrest [Fatal]
  - Hyperkalaemia [Fatal]
